FAERS Safety Report 13584238 (Version 1)
Quarter: 2017Q2

REPORT INFORMATION
  Report Type: Spontaneous
  Country: US (occurrence: US)
  Receive Date: 20170525
  Receipt Date: 20170525
  Transmission Date: 20170830
  Serious: Yes (Life-Threatening, Hospitalization, Other)
  Sender: FDA-Public Use
  Company Number: None

PATIENT
  Age: 53 Year
  Sex: Male
  Weight: 94.3 kg

DRUGS (14)
  1. BENZTROPINE [Concomitant]
     Active Substance: BENZTROPINE
  2. GLIPIZIDE. [Concomitant]
     Active Substance: GLIPIZIDE
  3. HALOPERIDOL. [Concomitant]
     Active Substance: HALOPERIDOL
  4. LISINOPRIL. [Suspect]
     Active Substance: LISINOPRIL
     Indication: DIABETES MELLITUS
     Route: 048
     Dates: start: 20130101, end: 20170116
  5. DIVALPROEX [Concomitant]
     Active Substance: DIVALPROEX SODIUM
  6. ASPIRIN. [Concomitant]
     Active Substance: ASPIRIN
  7. SITAGLIPTIN [Concomitant]
     Active Substance: SITAGLIPTIN
  8. SIMVASTATIN. [Concomitant]
     Active Substance: SIMVASTATIN
  9. CHOLECALCIFEROL [Concomitant]
     Active Substance: CHOLECALCIFEROL
  10. DIVALPROEX SODIUM. [Concomitant]
     Active Substance: DIVALPROEX SODIUM
  11. METFORMIN [Concomitant]
     Active Substance: METFORMIN HYDROCHLORIDE
  12. LISINOPRIL. [Suspect]
     Active Substance: LISINOPRIL
     Indication: HYPERTENSION
     Route: 048
     Dates: start: 20130101, end: 20170116
  13. ARIPIPRAZOLE. [Concomitant]
     Active Substance: ARIPIPRAZOLE
  14. TAMSULOSIN [Concomitant]
     Active Substance: TAMSULOSIN

REACTIONS (3)
  - Swollen tongue [None]
  - Pneumonia [None]
  - Angioedema [None]

NARRATIVE: CASE EVENT DATE: 20170116
